FAERS Safety Report 19079109 (Version 1)
Quarter: 2021Q1

REPORT INFORMATION
  Report Type: Spontaneous
  Country: US (occurrence: US)
  Receive Date: 20210331
  Receipt Date: 20210331
  Transmission Date: 20210420
  Serious: No
  Sender: FDA-Public Use
  Company Number: US-PFIZER INC-2020023468

PATIENT
  Age: 75 Year
  Sex: Female
  Weight: 98.43 kg

DRUGS (2)
  1. INSPRA [Suspect]
     Active Substance: EPLERENONE
     Indication: PRIMARY HYPERALDOSTERONISM
     Dosage: 50 MG, 1X/DAY
     Route: 048
  2. INSPRA [Suspect]
     Active Substance: EPLERENONE
     Dosage: 50 MG, DAILY (TAKE 1 TABLET EVERY DAY)
     Route: 048

REACTIONS (1)
  - Memory impairment [Unknown]
